FAERS Safety Report 12871594 (Version 1)
Quarter: 2016Q4

REPORT INFORMATION
  Report Type: Spontaneous
  Country: US (occurrence: US)
  Receive Date: 20161021
  Receipt Date: 20161021
  Transmission Date: 20170207
  Serious: Yes (Other)
  Sender: FDA-Public Use
  Company Number: US-NAPPMUNDI-USA-2016-0130456

PATIENT
  Sex: Male

DRUGS (2)
  1. OXYCONTIN [Suspect]
     Active Substance: OXYCODONE HYDROCHLORIDE
     Indication: PAIN
     Dosage: 30 MG, BID
     Route: 048
     Dates: start: 201603, end: 201604
  2. OXYCONTIN [Suspect]
     Active Substance: OXYCODONE HYDROCHLORIDE
     Dosage: 80 MG, BID
     Route: 048
     Dates: end: 201603

REACTIONS (6)
  - Confusional state [Not Recovered/Not Resolved]
  - Abasia [Not Recovered/Not Resolved]
  - Drug withdrawal syndrome [Unknown]
  - Visual acuity reduced [Not Recovered/Not Resolved]
  - Mobility decreased [Unknown]
  - Thinking abnormal [Not Recovered/Not Resolved]
